FAERS Safety Report 6730611-X (Version None)
Quarter: 2010Q2

REPORT INFORMATION
  Report Type: 
  Country: None (occurrence: None)
  Receive Date: 20100518
  Receipt Date: 20100507
  Transmission Date: 20101027
  Serious: Yes (Death, Other)
  Sender: FDA-Public Use
  Company Number: US-WYE-H15052010

PATIENT
  Sex: Female
  Weight: 68.1 kg

DRUGS (4)
  1. PREMARIN [Suspect]
     Indication: MENOPAUSE
     Route: 048
     Dates: start: 19600101
  2. PREMARIN [Suspect]
     Indication: HYPERHIDROSIS
  3. LIBRIUM [Concomitant]
     Dosage: UNKNOWN
     Route: 065
  4. VALIUM [Concomitant]
     Dosage: UNKNOWN
     Route: 065

REACTIONS (2)
  - METASTATIC UTERINE CANCER [None]
  - VAGINAL HAEMORRHAGE [None]
